FAERS Safety Report 22245350 (Version 1)
Quarter: 2023Q2

REPORT INFORMATION
  Report Type: Spontaneous
  Country: US (occurrence: US)
  Receive Date: 20230424
  Receipt Date: 20230424
  Transmission Date: 20230722
  Serious: No
  Sender: FDA-Public Use
  Company Number: US-JNJFOC-20230439646

PATIENT
  Age: 70 Year
  Sex: Male

DRUGS (8)
  1. ERLEADA [Suspect]
     Active Substance: APALUTAMIDE
     Indication: Prostate cancer
     Route: 048
     Dates: start: 20221108, end: 20221123
  2. ERLEADA [Suspect]
     Active Substance: APALUTAMIDE
     Route: 048
     Dates: start: 20230103
  3. ORGOVYX [Suspect]
     Active Substance: RELUGOLIX
     Indication: Prostate cancer
     Route: 048
     Dates: start: 20220915, end: 20220915
  4. ORGOVYX [Suspect]
     Active Substance: RELUGOLIX
     Route: 048
     Dates: start: 20220916, end: 20220926
  5. ORGOVYX [Suspect]
     Active Substance: RELUGOLIX
     Route: 048
     Dates: start: 20221013
  6. ASPIRIN [Concomitant]
     Active Substance: ASPIRIN
     Route: 065
     Dates: start: 20220913
  7. METOPROLOL SUCCINATE [Concomitant]
     Active Substance: METOPROLOL SUCCINATE
     Route: 065
     Dates: start: 20220913
  8. ATORVASTATIN CALCIUM [Concomitant]
     Active Substance: ATORVASTATIN CALCIUM
     Route: 065
     Dates: start: 20221003, end: 20230103

REACTIONS (2)
  - Dysphonia [Unknown]
  - Rash [Unknown]
